FAERS Safety Report 23253774 (Version 1)
Quarter: 2023Q4

REPORT INFORMATION
  Report Type: Spontaneous
  Country: FR (occurrence: FR)
  Receive Date: 20231202
  Receipt Date: 20231202
  Transmission Date: 20240110
  Serious: Yes (Hospitalization, Other)
  Sender: FDA-Public Use
  Company Number: FR-AFSSAPS-ST2023001517

PATIENT
  Age: 57 Year
  Sex: Female

DRUGS (1)
  1. VENLAFAXINE HYDROCHLORIDE [Suspect]
     Active Substance: VENLAFAXINE HYDROCHLORIDE
     Indication: Depression
     Dosage: 225 MILLIGRAM, ONCE A DAY (2 MATIN / 1 SOIR)
     Route: 048
     Dates: start: 20231002, end: 20231007

REACTIONS (5)
  - Delirium [Recovered/Resolved]
  - Somnolence [Recovered/Resolved]
  - Gait disturbance [Recovered/Resolved]
  - Fall [Recovered/Resolved]
  - Fatigue [Recovered/Resolved]

NARRATIVE: CASE EVENT DATE: 20231004
